FAERS Safety Report 5288607-3 (Version None)
Quarter: 2007Q1

REPORT INFORMATION
  Report Type: 
  Country: None (occurrence: None)
  Receive Date: 20070330
  Receipt Date: 20070319
  Transmission Date: 20070707
  Serious: Yes (Other)
  Sender: FDA-Public Use
  Company Number: 2007RR-06410

PATIENT
  Age: 42 Year
  Sex: Female
  Weight: 76 kg

DRUGS (8)
  1. AMOXICILLIN [Suspect]
     Indication: PROPHYLAXIS
     Dosage: 3 G, ORAL
     Route: 048
  2. HUMIRA [Suspect]
     Indication: ANKYLOSING SPONDYLITIS
     Dosage: 40 MG, FORTNIGHT, SUBCUTANEOUS
     Route: 058
     Dates: start: 20061201, end: 20061201
  3. FOLIC ACID [Concomitant]
  4. LANSOPRAZOLE [Concomitant]
  5. MELOXICAM [Concomitant]
  6. METHOTREXATE [Concomitant]
  7. PREDNISOLONE [Concomitant]
  8. RESIDRONATE [Concomitant]

REACTIONS (4)
  - HIP ARTHROPLASTY [None]
  - HYPERSENSITIVITY [None]
  - HYPERVENTILATION [None]
  - PARAESTHESIA ORAL [None]
